FAERS Safety Report 11193555 (Version 3)
Quarter: 2015Q3

REPORT INFORMATION
  Report Type: Spontaneous
  Country: FR (occurrence: FR)
  Receive Date: 20150616
  Receipt Date: 20150701
  Transmission Date: 20151125
  Serious: Yes (Other)
  Sender: FDA-Public Use
  Company Number: PHHY2015FR068788

PATIENT
  Age: 18 Month
  Sex: Female
  Weight: 12 kg

DRUGS (1)
  1. ECONAZOLE SANDOZ [Suspect]
     Active Substance: ECONAZOLE
     Indication: PRODUCT USED FOR UNKNOWN INDICATION
     Route: 055
     Dates: start: 20150602, end: 20150602

REACTIONS (8)
  - Cough [Recovered/Resolved]
  - Accidental exposure to product by child [Unknown]
  - Respiration abnormal [Recovered/Resolved]
  - Pyrexia [Recovered/Resolved]
  - Respiratory distress [Recovered/Resolved]
  - Laryngitis viral [Recovered/Resolved]
  - Laryngitis bacterial [Recovered/Resolved]
  - Dyspnoea [Recovered/Resolved]

NARRATIVE: CASE EVENT DATE: 20150602
